FAERS Safety Report 14906375 (Version 1)
Quarter: 2018Q2

REPORT INFORMATION
  Report Type: Spontaneous
  Country: US (occurrence: US)
  Receive Date: 20180517
  Receipt Date: 20180517
  Transmission Date: 20180711
  Serious: No
  Sender: FDA-Public Use
  Company Number: US-SA-2018SA108753

PATIENT
  Sex: Male

DRUGS (5)
  1. LANTUS SOLOSTAR [Suspect]
     Active Substance: INSULIN GLARGINE
     Dosage: DOSE:140 UNIT(S)
     Route: 051
     Dates: start: 201704
  2. HUMALOG [Concomitant]
     Active Substance: INSULIN LISPRO
     Route: 065
  3. LANTUS SOLOSTAR [Suspect]
     Active Substance: INSULIN GLARGINE
     Dosage: DOSE:145 UNIT(S)
     Route: 051
  4. FARXIGA [Concomitant]
     Active Substance: DAPAGLIFLOZIN PROPANEDIOL
     Route: 065
  5. SOLOSTAR [Suspect]
     Active Substance: DEVICE
     Dates: start: 201704

REACTIONS (3)
  - Injection site bruising [Recovered/Resolved]
  - Upper respiratory tract congestion [Unknown]
  - Productive cough [Unknown]

NARRATIVE: CASE EVENT DATE: 2018
